FAERS Safety Report 9702408 (Version 2)
Quarter: 2014Q1

REPORT INFORMATION
  Report Type: Spontaneous
  Country: IT (occurrence: IT)
  Receive Date: 20131121
  Receipt Date: 20140123
  Transmission Date: 20141002
  Serious: Yes (Hospitalization)
  Sender: FDA-Public Use
  Company Number: IT-TEVA-445453ISR

PATIENT
  Age: 19 Year
  Sex: Female

DRUGS (2)
  1. ALPRAZOLAM [Suspect]
     Indication: DRUG ABUSE
     Dosage: 20 ML TOTAL
     Route: 048
     Dates: start: 20131018, end: 20131018
  2. VALPROATE SODIUM [Suspect]
     Indication: DRUG ABUSE
     Dosage: 20 G TOTAL, GASTRO-RESISTANT TABLET
     Route: 048
     Dates: start: 20131018, end: 20131018

REACTIONS (3)
  - Drug abuse [Recovered/Resolved]
  - Sopor [Recovered/Resolved]
  - Psychotic disorder [Recovered/Resolved]
